FAERS Safety Report 20340250 (Version 2)
Quarter: 2022Q1

REPORT INFORMATION
  Report Type: Spontaneous
  Country: US (occurrence: None)
  Receive Date: 20220117
  Receipt Date: 20220221
  Transmission Date: 20220423
  Serious: No
  Sender: FDA-Public Use
  Company Number: 2022A018612

PATIENT
  Age: 873 Month
  Sex: Female

DRUGS (1)
  1. BYDUREON BCISE [Suspect]
     Active Substance: EXENATIDE
     Route: 065

REACTIONS (19)
  - Nausea [Unknown]
  - Feeling jittery [Unknown]
  - Decreased appetite [Unknown]
  - Weight decreased [Unknown]
  - Nasal discomfort [Unknown]
  - Dyskinesia [Unknown]
  - Tremor [Unknown]
  - Hypoaesthesia [Unknown]
  - Fall [Unknown]
  - Rotator cuff syndrome [Unknown]
  - Arthralgia [Unknown]
  - Limb discomfort [Unknown]
  - Weight increased [Unknown]
  - Injection site mass [Unknown]
  - Muscle spasms [Unknown]
  - Exposure to toxic agent [Unknown]
  - Device defective [Unknown]
  - Wrong technique in device usage process [Unknown]
  - Drug dose omission by device [Not Recovered/Not Resolved]

NARRATIVE: CASE EVENT DATE: 20200101
